FAERS Safety Report 6688865-4 (Version None)
Quarter: 2010Q2

REPORT INFORMATION
  Report Type: 
  Country: None (occurrence: None)
  Receive Date: 20100420
  Receipt Date: 20100406
  Transmission Date: 20101027
  Serious: No
  Sender: FDA-Public Use
  Company Number: US-ELI_LILLY_AND_COMPANY-US201002007004

PATIENT
  Sex: Female
  Weight: 72.562 kg

DRUGS (17)
  1. FORTEO [Suspect]
     Indication: OSTEOPOROSIS
     Dosage: 20 UG, DAILY (1/D)
     Dates: start: 20090520
  2. TEGRETOL [Concomitant]
     Dosage: 600 MG, DAILY (1/D)
  3. AMITRIPTYLINE HCL [Concomitant]
     Indication: MIGRAINE
  4. FOSAMAX [Concomitant]
     Dosage: 70 MG, WEEKLY (1/W)
     Dates: start: 20010101
  5. BUTALBITAL/CAFFEINE/PARACETAMOL/ [Concomitant]
     Indication: HEADACHE
  6. LIPITOR [Concomitant]
     Dosage: 40 MG, DAILY (1/D)
  7. CELEBREX [Concomitant]
     Indication: ARTHRITIS
     Dosage: 200 MG, DAILY (1/D)
  8. GLUCOSAMINE /CHOND /03040701/ [Concomitant]
  9. VITAMINS NOS [Concomitant]
  10. VITAMIN D [Concomitant]
  11. TUMS [Concomitant]
     Dosage: 300 MG, UNK
  12. TRIAMCINOLONE [Concomitant]
  13. PATANOL [Concomitant]
  14. ACYCLOVIR [Concomitant]
     Indication: HERPES VIRUS INFECTION
  15. MIRALAX [Concomitant]
  16. VICODIN [Concomitant]
     Indication: PAIN
     Dates: start: 20040901
  17. ATENOLOL [Concomitant]
     Indication: BLOOD PRESSURE
     Dosage: 50 MG, UNK

REACTIONS (2)
  - ERYTHEMA [None]
  - HERPES ZOSTER [None]
